FAERS Safety Report 7102676-7 (Version None)
Quarter: 2010Q4

REPORT INFORMATION
  Report Type: 
  Country: None (occurrence: None)
  Receive Date: 20101115
  Receipt Date: 20070905
  Transmission Date: 20110411
  Serious: Yes (Life-Threatening, Hospitalization)
  Sender: FDA-Public Use
  Company Number: PHRM2007FR02129

PATIENT
  Sex: Female
  Weight: 74 kg

DRUGS (19)
  1. GLEEVEC [Suspect]
     Indication: ACUTE LYMPHOCYTIC LEUKAEMIA
     Dosage: 800 MG DAILY
     Route: 048
     Dates: start: 20070612
  2. LOVENOX [Interacting]
     Indication: DEEP VEIN THROMBOSIS
     Dosage: 0.7 ML PER DAY
     Route: 065
     Dates: start: 20070703
  3. TRIFLUCAN [Interacting]
     Indication: PROPHYLAXIS
  4. GLUCOPHAGE [Concomitant]
     Indication: DIABETES MELLITUS
  5. INSULIN [Concomitant]
     Indication: DIABETES MELLITUS
  6. DEXAMETHASONE [Concomitant]
     Indication: ACUTE LYMPHOCYTIC LEUKAEMIA
     Dates: start: 20070612, end: 20070613
  7. VINCRISTINE [Concomitant]
     Dates: start: 20070612, end: 20070613
  8. VINCRISTINE [Concomitant]
     Dates: start: 20070620, end: 20070621
  9. VINCRISTINE [Concomitant]
     Dates: start: 20070626, end: 20070627
  10. VINCRISTINE [Concomitant]
     Dates: start: 20070703, end: 20070703
  11. METHOTREXATE [Concomitant]
     Indication: ACUTE LYMPHOCYTIC LEUKAEMIA
  12. HYDROCORTISONE [Concomitant]
  13. CYTARABINE [Concomitant]
     Indication: ACUTE LYMPHOCYTIC LEUKAEMIA
     Dates: start: 20070614, end: 20070614
  14. CYTARABINE [Concomitant]
     Dates: start: 20070625, end: 20070625
  15. CYTARABINE [Concomitant]
     Dates: start: 20070710, end: 20070710
  16. CYTARABINE [Concomitant]
     Dates: start: 20070723, end: 20070723
  17. PURINETHOL [Concomitant]
     Indication: ACUTE LYMPHOCYTIC LEUKAEMIA
     Dosage: 60 MG/M2 DAILY
     Route: 065
  18. BACTRIM [Concomitant]
     Indication: PROPHYLAXIS
  19. ZELITREX                                /DEN/ [Concomitant]
     Indication: PROPHYLAXIS

REACTIONS (8)
  - ANAEMIA [None]
  - DEEP VEIN THROMBOSIS [None]
  - DRUG INTERACTION [None]
  - FATIGUE [None]
  - HAEMOGLOBIN DECREASED [None]
  - HEADACHE [None]
  - INTERNATIONAL NORMALISED RATIO INCREASED [None]
  - SUBDURAL HAEMATOMA [None]
